FAERS Safety Report 10640096 (Version 2)
Quarter: 2015Q1

REPORT INFORMATION
  Report Type: Spontaneous
  Country: US (occurrence: US)
  Receive Date: 20141209
  Receipt Date: 20150109
  Transmission Date: 20150720
  Serious: Yes (Hospitalization)
  Sender: FDA-Public Use
  Company Number: US-INCYTE CORPORATION-2014IN003656

PATIENT
  Age: 77 Year
  Sex: Male
  Weight: 87.53 kg

DRUGS (23)
  1. OMEPRAZOLE. [Concomitant]
     Active Substance: OMEPRAZOLE
  2. TAMSULOSIN [Concomitant]
     Active Substance: TAMSULOSIN
  3. DIAZEPAM. [Concomitant]
     Active Substance: DIAZEPAM
  4. IBUPROFEN. [Concomitant]
     Active Substance: IBUPROFEN
  5. ASPIRIN. [Concomitant]
     Active Substance: ASPIRIN
  6. COLACE [Concomitant]
     Active Substance: DOCUSATE SODIUM
  7. JAKAFI [Suspect]
     Active Substance: RUXOLITINIB
     Indication: MYELOFIBROSIS
     Dosage: 20 MG, BID
     Dates: start: 20140320
  8. POTASSIUM CHLORIDE. [Concomitant]
     Active Substance: POTASSIUM CHLORIDE
  9. SIMVASTATIN. [Concomitant]
     Active Substance: SIMVASTATIN
  10. JAKAFI [Suspect]
     Active Substance: RUXOLITINIB
     Dosage: 10 MG, BID
     Route: 048
  11. DOXYCYCLINE. [Concomitant]
     Active Substance: DOXYCYCLINE
  12. PYRIDIUM [Concomitant]
     Active Substance: PHENAZOPYRIDINE
  13. LISINOPRIL. [Concomitant]
     Active Substance: LISINOPRIL
  14. PREDNISONE. [Concomitant]
     Active Substance: PREDNISONE
  15. AMLODIPINE [Concomitant]
     Active Substance: AMLODIPINE BESYLATE
  16. LEVAQUIN [Concomitant]
     Active Substance: LEVOFLOXACIN
  17. ALBUTEROL                          /00139501/ [Concomitant]
     Active Substance: ALBUTEROL
  18. FINASTERIDE. [Concomitant]
     Active Substance: FINASTERIDE
  19. INDAPAMIDE. [Concomitant]
     Active Substance: INDAPAMIDE
  20. GABAPENTIN. [Concomitant]
     Active Substance: GABAPENTIN
  21. IRON [Concomitant]
     Active Substance: IRON
  22. ALLOPURINOL. [Concomitant]
     Active Substance: ALLOPURINOL
  23. HYDROCODONE [Concomitant]
     Active Substance: HYDROCODONE

REACTIONS (1)
  - Influenza [Unknown]

NARRATIVE: CASE EVENT DATE: 20141129
